FAERS Safety Report 9229456 (Version 1)
Quarter: 2013Q2

REPORT INFORMATION
  Report Type: Spontaneous
  Country: US (occurrence: US)
  Receive Date: 20130412
  Receipt Date: 20130412
  Transmission Date: 20140414
  Serious: Yes (Hospitalization)
  Sender: FDA-Public Use
  Company Number: US-ASTELLAS-2013US002111

PATIENT
  Age: 65 Year
  Sex: Female
  Weight: 100 kg

DRUGS (2)
  1. PROGRAF [Suspect]
     Indication: LIVER TRANSPLANT
     Dosage: 1 MG, BID
     Route: 048
     Dates: start: 20020818
  2. PROGRAF [Suspect]
     Dosage: 2 MG IN THE MORNING, 1 MG IN THE EVENING
     Route: 048
     Dates: start: 20000221

REACTIONS (2)
  - Dyspnoea [Unknown]
  - Pneumonia [Unknown]
